FAERS Safety Report 4583330-2 (Version None)
Quarter: 2005Q1

REPORT INFORMATION
  Report Type: 
  Country: None (occurrence: None)
  Receive Date: 20050125
  Receipt Date: 20041019
  Transmission Date: 20050727
  Serious: No
  Sender: FDA-Public Use
  Company Number: USA040156365

PATIENT
  Age: 65 Year
  Sex: Female
  Weight: 42 kg

DRUGS (3)
  1. FORTEO [Suspect]
     Indication: OSTEOPOROSIS
     Dosage: 20 UG DAY
     Dates: start: 20030201
  2. HYDROCHLOROTHIAZIDE W/IRBESARTAN [Concomitant]
  3. CALCIUM GLUCONATE [Concomitant]

REACTIONS (4)
  - BLOOD CALCIUM INCREASED [None]
  - FATIGUE [None]
  - HYPERTENSION [None]
  - MUSCULAR WEAKNESS [None]
